FAERS Safety Report 24140958 (Version 1)
Quarter: 2024Q3

REPORT INFORMATION
  Report Type: Spontaneous
  Country: US (occurrence: None)
  Receive Date: 20240725
  Receipt Date: 20240725
  Transmission Date: 20241017
  Serious: Yes (Hospitalization)
  Sender: Public
  Company Number: None

PATIENT
  Age: 60 Year
  Sex: Female
  Weight: 76.5 kg

DRUGS (1)
  1. LEVOTHYROXINE [Suspect]
     Active Substance: LEVOTHYROXINE\LEVOTHYROXINE SODIUM
     Indication: Hypothyroidism
     Dosage: OTHER QUANTITY : 1 TABLET(S);?
     Route: 048

REACTIONS (4)
  - Dizziness [None]
  - Vomiting [None]
  - Loss of consciousness [None]
  - Mental impairment [None]

NARRATIVE: CASE EVENT DATE: 20240512
